FAERS Safety Report 16139506 (Version 1)
Quarter: 2019Q2

REPORT INFORMATION
  Report Type: Spontaneous
  Country: ES (occurrence: ES)
  Receive Date: 20190401
  Receipt Date: 20190401
  Transmission Date: 20190711
  Serious: Yes (Other)
  Sender: FDA-Public Use
  Company Number: ES-ROCHE-2285981

PATIENT

DRUGS (2)
  1. NIVOLUMAB [Suspect]
     Active Substance: NIVOLUMAB
     Indication: RENAL CANCER
     Dosage: UNK
     Route: 065
     Dates: start: 201501
  2. BEVACIZUMAB. [Suspect]
     Active Substance: BEVACIZUMAB
     Indication: RENAL CANCER
     Dosage: UNK
     Route: 065
     Dates: start: 201501

REACTIONS (2)
  - Malignant neoplasm progression [Unknown]
  - Tumour pseudoprogression [Unknown]

NARRATIVE: CASE EVENT DATE: 201603
